FAERS Safety Report 11139042 (Version 1)
Quarter: 2015Q2

REPORT INFORMATION
  Report Type: Spontaneous
  Country: JP (occurrence: None)
  Receive Date: 20150522
  Receipt Date: 20150522
  Transmission Date: 20150821
  Serious: Yes (Hospitalization, Other)
  Sender: FDA-Public Use
  Company Number: 2015050007

PATIENT
  Age: 53 Year
  Sex: Male

DRUGS (2)
  1. PREDNISOLONE (PREDNISOLONE) [Concomitant]
     Active Substance: PREDNISOLONE
  2. MESALAZINE (MESALAZINE) [Suspect]
     Active Substance: MESALAMINE
     Indication: COLITIS ULCERATIVE

REACTIONS (8)
  - Pigmentation disorder [None]
  - Dyspnoea exertional [None]
  - Pyrexia [None]
  - Toxic epidermal necrolysis [None]
  - Obliterative bronchiolitis [None]
  - Scar [None]
  - Bronchiectasis [None]
  - Emphysema [None]
